FAERS Safety Report 11988415 (Version 3)
Quarter: 2017Q1

REPORT INFORMATION
  Report Type: Report from Study
  Country: JP (occurrence: JP)
  Receive Date: 20160202
  Receipt Date: 20170223
  Transmission Date: 20170428
  Serious: Yes (Death, Life-Threatening, Other)
  Sender: FDA-Public Use
  Company Number: JP-009507513-1601JPN011662

PATIENT
  Age: 71 Year
  Sex: Male
  Weight: 63 kg

DRUGS (4)
  1. GENTAMICIN SULFATE. [Concomitant]
     Active Substance: GENTAMICIN SULFATE
     Indication: STAPHYLOCOCCAL SEPSIS
     Dosage: 80 MG, UNK
     Route: 041
     Dates: start: 20151217, end: 20151217
  2. SANGLOPOR [Concomitant]
     Active Substance: HUMAN IMMUNOGLOBULIN G
     Indication: STAPHYLOCOCCAL SEPSIS
     Dosage: 2.5 G, BID
     Route: 051
     Dates: start: 20151216, end: 20151218
  3. UNASYN S [Concomitant]
     Active Substance: AMPICILLIN SODIUM\SULBACTAM SODIUM
     Indication: STAPHYLOCOCCAL SEPSIS
     Dosage: 6 G, UNK
     Route: 041
     Dates: start: 20151216, end: 20151218
  4. CUBICIN [Suspect]
     Active Substance: DAPTOMYCIN
     Indication: STAPHYLOCOCCAL SEPSIS
     Dosage: 5.7 MG/KG, QD
     Route: 041
     Dates: start: 20151218, end: 20151223

REACTIONS (3)
  - White blood cell count increased [Not Recovered/Not Resolved]
  - Cardiac infection [Fatal]
  - Drug ineffective [Unknown]

NARRATIVE: CASE EVENT DATE: 20151223
